FAERS Safety Report 16341773 (Version 2)
Quarter: 2020Q1

REPORT INFORMATION
  Report Type: Spontaneous
  Country: US (occurrence: US)
  Receive Date: 20190522
  Receipt Date: 20200116
  Transmission Date: 20200409
  Serious: No
  Sender: FDA-Public Use
  Company Number: US-TEVA-2019-US-1054929

PATIENT
  Age: 59 Year
  Sex: Female
  Weight: 59.02 kg

DRUGS (7)
  1. BIOTIN [Concomitant]
     Active Substance: BIOTIN
  2. CALCIUM [Concomitant]
     Active Substance: CALCIUM
  3. MAGNESIUM [Concomitant]
     Active Substance: MAGNESIUM
  4. D2 [Concomitant]
  5. AJOVY [Suspect]
     Active Substance: FREMANEZUMAB-VFRM
     Indication: MIGRAINE
     Dates: start: 201901
  6. GABAPENTIN. [Concomitant]
     Active Substance: GABAPENTIN
     Dosage: 300 MILLIGRAM DAILY;
  7. DIAMOX SEQUELS [Concomitant]
     Active Substance: ACETAZOLAMIDE
     Dosage: BEDTIME

REACTIONS (3)
  - Madarosis [Recovered/Resolved]
  - Flatulence [Not Recovered/Not Resolved]
  - Eyelash changes [Not Recovered/Not Resolved]

NARRATIVE: CASE EVENT DATE: 201904
